FAERS Safety Report 4673627-X (Version None)
Quarter: 2005Q2

REPORT INFORMATION
  Report Type: 
  Country: None (occurrence: None)
  Receive Date: 20050525
  Receipt Date: 20050516
  Transmission Date: 20051028
  Serious: Yes (Other)
  Sender: FDA-Public Use
  Company Number: 2005AP02898

PATIENT
  Age: 49 Day
  Sex: Female
  Weight: 5 kg

DRUGS (2)
  1. MEROPENEM [Suspect]
     Route: 042
  2. PARACETAMOL [Concomitant]
     Indication: PYREXIA
     Route: 048
     Dates: start: 20050208, end: 20050208

REACTIONS (2)
  - HEPATITIS [None]
  - LIVER FUNCTION TEST ABNORMAL [None]
